FAERS Safety Report 9145211 (Version 1)
Quarter: 2013Q1

REPORT INFORMATION
  Report Type: Spontaneous
  Country: US (occurrence: None)
  Receive Date: 20130226
  Receipt Date: 20130226
  Transmission Date: 20140127
  Serious: Yes (Other)
  Sender: FDA-Public Use
  Company Number: None

PATIENT
  Age: 72 Year
  Sex: Male
  Weight: 104.33 kg

DRUGS (1)
  1. CLODERM [Suspect]
     Dosage: SPARINGLY  2 TIMES A DAY, TOP
     Route: 061
     Dates: start: 20130221, end: 20130222

REACTIONS (6)
  - Blister [None]
  - Purulent discharge [None]
  - Skin fissures [None]
  - Skin ulcer [None]
  - Burning sensation [None]
  - Local swelling [None]
